FAERS Safety Report 4483501-X (Version None)
Quarter: 2004Q4

REPORT INFORMATION
  Report Type: 
  Country: None (occurrence: None)
  Receive Date: 20041019
  Receipt Date: 20041019
  Transmission Date: 20050328
  Serious: Yes (Life-Threatening, Hospitalization)
  Sender: FDA-Public Use
  Company Number: None

PATIENT
  Sex: Female
  Weight: 72.5755 kg

DRUGS (3)
  1. VIOXX [Suspect]
     Indication: ARTHRALGIA
     Dosage: 1 X DAY
  2. VIOXX [Suspect]
     Indication: INFLAMMATION
     Dosage: 1 X DAY
  3. CELEBREX [Suspect]
     Indication: ARTHRITIS
     Dosage: 1X DAY

REACTIONS (5)
  - BLOOD URINE [None]
  - DYSPEPSIA [None]
  - GASTROINTESTINAL DISORDER [None]
  - GASTROOESOPHAGEAL REFLUX DISEASE [None]
  - URINARY TRACT INFECTION [None]
